FAERS Safety Report 15277944 (Version 2)
Quarter: 2018Q3

REPORT INFORMATION
  Report Type: Spontaneous
  Country: AT (occurrence: AT)
  Receive Date: 20180814
  Receipt Date: 20180928
  Transmission Date: 20181010
  Serious: Yes (Hospitalization, Other)
  Sender: FDA-Public Use
  Company Number: AT-INCYTE CORPORATION-2018IN007818

PATIENT

DRUGS (3)
  1. JAKAVI [Suspect]
     Active Substance: RUXOLITINIB
     Indication: PRIMARY MYELOFIBROSIS
     Dosage: 5 MG, BID
     Route: 065
     Dates: start: 20170529
  2. DANATROL [Concomitant]
     Active Substance: DANAZOL
     Indication: HAEMOLYSIS
     Dosage: 100 MG, BID
     Route: 048
     Dates: start: 20170529
  3. PREDNISOLONE. [Concomitant]
     Active Substance: PREDNISOLONE
     Indication: HAEMOLYSIS
     Dosage: 25 MG, UNK (1/2?0?0)
     Route: 048
     Dates: start: 20170520

REACTIONS (3)
  - Melaena [Unknown]
  - Adenocarcinoma of colon [Unknown]
  - Colon cancer [Not Recovered/Not Resolved]

NARRATIVE: CASE EVENT DATE: 201806
